FAERS Safety Report 17244553 (Version 1)
Quarter: 2020Q1

REPORT INFORMATION
  Report Type: Report from Study
  Country: US (occurrence: US)
  Receive Date: 20200107
  Receipt Date: 20200107
  Transmission Date: 20200409
  Serious: Yes (Hospitalization)
  Sender: FDA-Public Use
  Company Number: US-GILEAD-2020-0445452

PATIENT
  Age: 55 Year
  Sex: Female

DRUGS (36)
  1. AMLODIPINE [Concomitant]
     Active Substance: AMLODIPINE BESYLATE
  2. CHLORTHALIDONE. [Concomitant]
     Active Substance: CHLORTHALIDONE
  3. ESCITALOPRAM [Concomitant]
     Active Substance: ESCITALOPRAM OXALATE
  4. NITROGLYCERIN. [Concomitant]
     Active Substance: NITROGLYCERIN
  5. PREDNISONE. [Concomitant]
     Active Substance: PREDNISONE
  6. PROAIR HFA [Concomitant]
     Active Substance: ALBUTEROL SULFATE
  7. OXYGEN. [Concomitant]
     Active Substance: OXYGEN
  8. BACLOFEN. [Concomitant]
     Active Substance: BACLOFEN
  9. DULERA [Concomitant]
     Active Substance: FORMOTEROL FUMARATE DIHYDRATE\MOMETASONE FUROATE
  10. FUROSEMIDE. [Concomitant]
     Active Substance: FUROSEMIDE
  11. MAG-OX [Concomitant]
     Active Substance: MAGNESIUM OXIDE
  12. OYSTER SHELL [Concomitant]
     Active Substance: OSTREA EDULIS SHELL
  13. PANTOPRAZOLE [Concomitant]
     Active Substance: PANTOPRAZOLE
  14. CLONIDINE. [Concomitant]
     Active Substance: CLONIDINE
  15. FLUTICASONE. [Concomitant]
     Active Substance: FLUTICASONE
  16. AMBRISENTAN [Suspect]
     Active Substance: AMBRISENTAN
     Indication: PULMONARY ARTERIAL HYPERTENSION
     Dosage: 10 MG, QD
     Route: 065
     Dates: start: 20160503
  17. ADEMPAS [Concomitant]
     Active Substance: RIOCIGUAT
  18. ALBUTEROL SULFATE. [Concomitant]
     Active Substance: ALBUTEROL SULFATE
  19. ALPRAZOLAM. [Concomitant]
     Active Substance: ALPRAZOLAM
  20. POLYETHYLENE [Concomitant]
     Active Substance: HIGH DENSITY POLYETHYLENE
  21. TYVASO [Concomitant]
     Active Substance: TREPROSTINIL
  22. ADVAIR HFA [Concomitant]
     Active Substance: FLUTICASONE PROPIONATE\SALMETEROL XINAFOATE
  23. DOCUSATE [Concomitant]
     Active Substance: DOCUSATE
  24. LYRICA [Concomitant]
     Active Substance: PREGABALIN
  25. VELETRI [Concomitant]
     Active Substance: EPOPROSTENOL
  26. ADCIRCA [Concomitant]
     Active Substance: TADALAFIL
  27. LANSOPRAZOLE. [Concomitant]
     Active Substance: LANSOPRAZOLE
  28. LOSARTAN. [Concomitant]
     Active Substance: LOSARTAN
  29. METHOTREXATE. [Concomitant]
     Active Substance: METHOTREXATE
  30. ONDANSETRON [Concomitant]
     Active Substance: ONDANSETRON
  31. TRAMADOL. [Concomitant]
     Active Substance: TRAMADOL
  32. ALENDRONATE [Concomitant]
     Active Substance: ALENDRONATE SODIUM
  33. AZATHIOPRINE. [Concomitant]
     Active Substance: AZATHIOPRINE
  34. LIDOCAINE. [Concomitant]
     Active Substance: LIDOCAINE
  35. METHOCARBAMOL. [Concomitant]
     Active Substance: METHOCARBAMOL
  36. UPTRAVI [Concomitant]
     Active Substance: SELEXIPAG

REACTIONS (1)
  - Dyspnoea [Not Recovered/Not Resolved]

NARRATIVE: CASE EVENT DATE: 20200101
